FAERS Safety Report 24375751 (Version 1)
Quarter: 2024Q3

REPORT INFORMATION
  Report Type: Spontaneous
  Country: IT (occurrence: IT)
  Receive Date: 20240928
  Receipt Date: 20240928
  Transmission Date: 20241017
  Serious: Yes (Other)
  Sender: CELLTRION
  Company Number: None

PATIENT

DRUGS (1)
  1. YUFLYMA [Suspect]
     Active Substance: ADALIMUMAB-AATY
     Indication: Psoriatic arthropathy
     Dosage: 40 MG, EVERY 15 DAYS
     Route: 058
     Dates: start: 20180129, end: 20230711

REACTIONS (3)
  - Abortion [Recovered/Resolved with Sequelae]
  - Maternal exposure timing unspecified [Unknown]
  - Intentional product use issue [Unknown]

NARRATIVE: CASE EVENT DATE: 20230501
